FAERS Safety Report 21087236 (Version 1)
Quarter: 2022Q3

REPORT INFORMATION
  Report Type: Spontaneous
  Country: JP (occurrence: JP)
  Receive Date: 20220715
  Receipt Date: 20220715
  Transmission Date: 20221026
  Serious: Yes (Hospitalization)
  Sender: FDA-Public Use
  Company Number: JP-MYLANLABS-2022M1077353

PATIENT
  Age: 19 Year
  Sex: Female

DRUGS (3)
  1. VANCOMYCIN [Suspect]
     Active Substance: VANCOMYCIN
     Indication: Staphylococcal bacteraemia
     Dosage: VIA CENTRAL VENOUS CATHETER
     Route: 042
  2. BETAMETHASONE [Concomitant]
     Active Substance: BETAMETHASONE
     Indication: Immunosuppressant drug therapy
     Dosage: TO WHOLE BODY
     Route: 061
  3. PIPERACILLIN AND TAZOBACTAM [Concomitant]
     Active Substance: PIPERACILLIN SODIUM\TAZOBACTAM SODIUM
     Indication: Streptococcal infection
     Dosage: VIA CENTRAL VENOUS CATHETER
     Route: 042

REACTIONS (1)
  - Drug ineffective [Recovering/Resolving]
